FAERS Safety Report 14110284 (Version 22)
Quarter: 2020Q2

REPORT INFORMATION
  Report Type: Spontaneous
  Country: US (occurrence: US)
  Receive Date: 20171020
  Receipt Date: 20200424
  Transmission Date: 20200713
  Serious: Yes (Death, Hospitalization, Other)
  Sender: FDA-Public Use
  Company Number: US-PFIZER INC-2016565893

PATIENT
  Age: 42 Year
  Sex: Female
  Weight: 53 kg

DRUGS (5)
  1. ELELYSO [Suspect]
     Active Substance: TALIGLUCERASE ALFA
     Dosage: UNK
     Dates: start: 20180501, end: 20180501
  2. ELELYSO [Suspect]
     Active Substance: TALIGLUCERASE ALFA
     Indication: GAUCHER^S DISEASE TYPE I
     Dosage: 3200 IU, CYCLIC (EVERY 2 WEEKS)
     Route: 042
     Dates: end: 201712
  3. ELELYSO [Suspect]
     Active Substance: TALIGLUCERASE ALFA
     Dosage: UNK
     Dates: start: 20180801, end: 20180801
  4. ELELYSO [Suspect]
     Active Substance: TALIGLUCERASE ALFA
     Dosage: UNK
     Dates: start: 20190212, end: 20190212
  5. ELELYSO [Suspect]
     Active Substance: TALIGLUCERASE ALFA
     Dosage: UNK
     Dates: start: 20180529, end: 20180529

REACTIONS (29)
  - Pneumonia [Not Recovered/Not Resolved]
  - Arthropod bite [Unknown]
  - Bronchitis [Recovering/Resolving]
  - Gingival disorder [Unknown]
  - Fatigue [Not Recovered/Not Resolved]
  - Dyspnoea [Not Recovered/Not Resolved]
  - Lower respiratory tract infection [Unknown]
  - Feeling abnormal [Unknown]
  - Pyrexia [Unknown]
  - Oral pain [Unknown]
  - Pain in extremity [Unknown]
  - Wheezing [Unknown]
  - Asthma [Recovering/Resolving]
  - Vitamin D deficiency [Unknown]
  - Bone pain [Not Recovered/Not Resolved]
  - Haemorrhage [Unknown]
  - Product dose omission [Unknown]
  - Heart rate increased [Recovering/Resolving]
  - Asthenia [Not Recovered/Not Resolved]
  - Nasopharyngitis [Not Recovered/Not Resolved]
  - Productive cough [Recovering/Resolving]
  - Oropharyngeal pain [Unknown]
  - Lung carcinoma cell type unspecified stage IV [Fatal]
  - Migraine [Unknown]
  - Malaise [Unknown]
  - Chest pain [Recovered/Resolved]
  - Palpitations [Recovering/Resolving]
  - Anxiety [Unknown]
  - Sinusitis [Unknown]

NARRATIVE: CASE EVENT DATE: 20171011
